FAERS Safety Report 15768229 (Version 4)
Quarter: 2020Q1

REPORT INFORMATION
  Report Type: Spontaneous
  Country: IL (occurrence: IL)
  Receive Date: 20181227
  Receipt Date: 20200224
  Transmission Date: 20200409
  Serious: Yes (Death, Life-Threatening, Hospitalization)
  Sender: FDA-Public Use
  Company Number: IL-TAKEDA-2018MPI017932

PATIENT
  Age: 73 Year
  Sex: Female
  Weight: 32 kg

DRUGS (4)
  1. CYCLOPHOSPHAMIDE. [Suspect]
     Active Substance: CYCLOPHOSPHAMIDE
     Indication: CARDIAC AMYLOIDOSIS
     Dosage: UNK, 1/WEEK
     Route: 042
     Dates: start: 20180927, end: 20181111
  2. DARATUMUMAB [Suspect]
     Active Substance: DARATUMUMAB
     Indication: CARDIAC AMYLOIDOSIS
     Dosage: UNK, 2/WEEK
     Route: 058
     Dates: start: 20180927, end: 20181204
  3. VELCADE [Suspect]
     Active Substance: BORTEZOMIB
     Indication: CARDIAC AMYLOIDOSIS
     Dosage: 1.6 MG/M2, 1/WEEK
     Route: 058
     Dates: start: 20180927, end: 20181211
  4. DEXAMETHASONE. [Suspect]
     Active Substance: DEXAMETHASONE
     Indication: CARDIAC AMYLOIDOSIS
     Dosage: 24 MILLIGRAM, 1/WEEK
     Route: 042
     Dates: start: 20180927, end: 20181212

REACTIONS (4)
  - Pneumonia [Not Recovered/Not Resolved]
  - Product use in unapproved indication [Unknown]
  - Bradyarrhythmia [Fatal]
  - Off label use [Unknown]

NARRATIVE: CASE EVENT DATE: 20180927
